FAERS Safety Report 8620295 (Version 3)
Quarter: 2012Q4

REPORT INFORMATION
  Report Type: 
  Country: US (occurrence: None)
  Receive Date: 20120614
  Receipt Date: 20120927
  Transmission Date: 20130627
  Serious: Yes (Hospitalization)
  Sender: FDA-Public Use
  Company Number: 20120510

PATIENT
  Age: 59 Year
  Sex: Female
  Weight: 57.7 kg

DRUGS (18)
  1. MIFEPRISTONE [Suspect]
     Indication: CUSHING^S SYNDROME
     Dosage: 600MG QOD PO
     Route: 048
     Dates: start: 20100628
  2. BENADRYL [Concomitant]
  3. GRAPE SEED EXTRACT [Concomitant]
  4. ACIDOPHILUS PROBIOTICS [Concomitant]
  5. COZAAR [Concomitant]
  6. SARNA CREAM TOPICAL [Concomitant]
  7. PANTOPRAZOLE [Concomitant]
  8. MULTI-VITAMIN [Concomitant]
  9. EVENING PRIMROSE OIL [Concomitant]
  10. GLUCOSAMINE-MSM-CHONDROITIN [Concomitant]
  11. COENZYME [Concomitant]
  12. B-VITAMIN COMPLEX [Concomitant]
  13. C-VITAMIN [Concomitant]
  14. GARLIC TABLET [Concomitant]
  15. COMPLETE EFA [Concomitant]
  16. CALCIUM MAGNESIUM ZINC [Concomitant]
  17. PROTONIX [Concomitant]
  18. COUMADIN [Concomitant]

REACTIONS (5)
  - Muscular weakness [None]
  - Nausea [None]
  - Headache [None]
  - Malaise [None]
  - Cerebral infarction [None]
